FAERS Safety Report 9252094 (Version 1)
Quarter: 2013Q1

REPORT INFORMATION
  Report Type: Spontaneous
  Country: US (occurrence: None)
  Receive Date: 20130305
  Receipt Date: 20130305
  Transmission Date: 20140127
  Serious: Yes (Disabling)
  Sender: FDA-Public Use
  Company Number: 163-21880-12081938 (0)

PATIENT
  Age: 51 Year
  Sex: Female

DRUGS (3)
  1. REVLIMID [Suspect]
     Indication: PLASMA CELL MYELOMA
     Route: 048
     Dates: start: 20100308, end: 2010
  2. XANAX (ALPRAZOLAM) [Concomitant]
  3. POTASSIUM CHLORIDE (POTASSIUM CHLORIDE) [Concomitant]

REACTIONS (6)
  - Fatigue [None]
  - Abdominal pain [None]
  - Diarrhoea [None]
  - Pain [None]
  - Dehydration [None]
  - Dizziness [None]
